FAERS Safety Report 17232416 (Version 2)
Quarter: 2020Q1

REPORT INFORMATION
  Report Type: Report from Study
  Country: US (occurrence: US)
  Receive Date: 20200103
  Receipt Date: 20200210
  Transmission Date: 20200409
  Serious: Yes (Other)
  Sender: FDA-Public Use
  Company Number: US-SA-2020SA000877

PATIENT
  Age: 43 Year
  Sex: Female

DRUGS (18)
  1. AXETIL [Concomitant]
     Active Substance: CEFUROXIME AXETIL
  2. HYDROCHLOROTHIAZIDE. [Concomitant]
     Active Substance: HYDROCHLOROTHIAZIDE
  3. TRESIBA [Concomitant]
     Active Substance: INSULIN DEGLUDEC
  4. ATENOLOL. [Concomitant]
     Active Substance: ATENOLOL
  5. CEFUROXIME. [Concomitant]
     Active Substance: CEFUROXIME
  6. OMEPRAZOLE. [Concomitant]
     Active Substance: OMEPRAZOLE
  7. SIMVASTATIN. [Concomitant]
     Active Substance: SIMVASTATIN
  8. NOVOLOG [Concomitant]
     Active Substance: INSULIN ASPART
  9. TERIFLUNOMIDE. [Suspect]
     Active Substance: TERIFLUNOMIDE
     Indication: MULTIPLE SCLEROSIS
     Dosage: 1 DF, QD
     Route: 048
     Dates: start: 20191119
  10. TERIFLUNOMIDE. [Suspect]
     Active Substance: TERIFLUNOMIDE
     Dosage: 14 MG, QD
     Route: 048
     Dates: start: 20191204
  11. GRALISE [Concomitant]
     Active Substance: GABAPENTIN
  12. METOCLOPRAMIDE HCL [Concomitant]
     Active Substance: METOCLOPRAMIDE HYDROCHLORIDE
  13. FLUARIX NOS [Concomitant]
     Active Substance: INFLUENZA VIRUS VACCINE
  14. LEVONORGESTREL AND ETHINYL ESTRADIOL [Concomitant]
     Active Substance: ETHINYL ESTRADIOL\LEVONORGESTREL
  15. LISINOPRIL. [Concomitant]
     Active Substance: LISINOPRIL
  16. QUADRIVALENT INFLUENZA VACCINE [Concomitant]
  17. BACLOFEN. [Concomitant]
     Active Substance: BACLOFEN
  18. GABAPENTIN. [Concomitant]
     Active Substance: GABAPENTIN

REACTIONS (5)
  - Pain in extremity [Not Recovered/Not Resolved]
  - Diabetes mellitus [Not Recovered/Not Resolved]
  - Trichorrhexis [Not Recovered/Not Resolved]
  - Abdominal discomfort [Not Recovered/Not Resolved]
  - Alopecia [Not Recovered/Not Resolved]

NARRATIVE: CASE EVENT DATE: 201911
